FAERS Safety Report 13022616 (Version 1)
Quarter: 2016Q4

REPORT INFORMATION
  Report Type: Spontaneous
  Country: FR (occurrence: FR)
  Receive Date: 20161213
  Receipt Date: 20161213
  Transmission Date: 20170207
  Serious: Yes (Hospitalization)
  Sender: FDA-Public Use
  Company Number: FR-PFIZER INC-2016567064

PATIENT
  Age: 79 Year
  Sex: Female

DRUGS (1)
  1. NOVATREX NOS [Suspect]
     Active Substance: AZITHROMYCIN OR METHOTREXATE SODIUM
     Indication: RHEUMATOID ARTHRITIS
     Dosage: 2.5 MG, 2X/WEEK
     Route: 048
     Dates: start: 1998, end: 20160906

REACTIONS (2)
  - Pancytopenia [Recovered/Resolved]
  - Lip injury [Recovering/Resolving]

NARRATIVE: CASE EVENT DATE: 20160906
